FAERS Safety Report 9888061 (Version 1)
Quarter: 2014Q1

REPORT INFORMATION
  Report Type: Spontaneous
  Country: DE (occurrence: None)
  Receive Date: 20140207
  Receipt Date: 20140207
  Transmission Date: 20141002
  Serious: Yes (Other)
  Sender: FDA-Public Use
  Company Number: SYM-2014-16138

PATIENT
  Sex: 0

DRUGS (2)
  1. FLUOROURACIL (FLUOROURACIL) (INFUSION) (FLUOROURACIL) [Suspect]
     Indication: GASTROOESOPHAGEAL CANCER
     Dosage: 600 MG/M2, INTRAVENOUS (NOT OTHERWISE SPECIFIED)?
     Route: 042
  2. CISPLATIN (CISPLATIN) (CISPLATIN) [Suspect]
     Indication: GASTROOESOPHAGEAL CANCER

REACTIONS (1)
  - Haematotoxicity [None]
